FAERS Safety Report 12665451 (Version 2)
Quarter: 2020Q3

REPORT INFORMATION
  Report Type: Report from Study
  Country: US (occurrence: US)
  Receive Date: 20160818
  Receipt Date: 20160823
  Transmission Date: 20201105
  Serious: Yes (Hospitalization)
  Sender: FDA-Public Use
  Company Number: US-JNJFOC-20160800769

PATIENT
  Age: 82 Year
  Sex: Male
  Weight: 71 kg

DRUGS (10)
  1. FLOMAX [Concomitant]
     Active Substance: TAMSULOSIN HYDROCHLORIDE
     Indication: BENIGN PROSTATIC HYPERPLASIA
     Route: 048
  2. RITUXIMAB. [Suspect]
     Active Substance: RITUXIMAB
     Indication: MANTLE CELL LYMPHOMA
     Route: 042
     Dates: start: 20160608, end: 20160608
  3. MOBIC [Concomitant]
     Active Substance: MELOXICAM
     Indication: SACROILIITIS
     Route: 048
  4. BENDAMUSTINE [Suspect]
     Active Substance: BENDAMUSTINE
     Indication: MANTLE CELL LYMPHOMA
     Dosage: ONCE
     Route: 042
     Dates: start: 20140815, end: 20140815
  5. NORVASC [Concomitant]
     Active Substance: AMLODIPINE BESYLATE
     Indication: HYPERTENSION
     Route: 048
  6. IBRUTINIB [Suspect]
     Active Substance: IBRUTINIB
     Indication: MANTLE CELL LYMPHOMA
     Route: 048
     Dates: start: 20160608, end: 20160731
  7. COZAAR [Concomitant]
     Active Substance: LOSARTAN POTASSIUM
     Indication: HYPERTENSION
     Route: 048
  8. LOPRESSOR [Concomitant]
     Active Substance: METOPROLOL TARTRATE
     Indication: HYPERTENSION
     Route: 048
  9. IBRUTINIB [Suspect]
     Active Substance: IBRUTINIB
     Route: 048
  10. COMBIGAN [Concomitant]
     Active Substance: BRIMONIDINE TARTRATE\TIMOLOL MALEATE
     Dosage: 0.2 ? 0.5 %, 1 DROP IN BOTH EYE

REACTIONS (3)
  - Bronchitis [Recovering/Resolving]
  - Supraventricular tachycardia [Recovered/Resolved]
  - Sinusitis [Recovering/Resolving]

NARRATIVE: CASE EVENT DATE: 20160729
